FAERS Safety Report 8659680 (Version 3)
Quarter: 2012Q4

REPORT INFORMATION
  Report Type: 
  Country: US (occurrence: US)
  Receive Date: 20120711
  Receipt Date: 20120828
  Transmission Date: 20130627
  Serious: Yes (Death)
  Sender: FDA-Public Use
  Company Number: US-PFIZER INC-2012163728

PATIENT
  Age: 49 Year
  Sex: Male

DRUGS (3)
  1. SUTENT [Suspect]
     Indication: METASTATIC RENAL CELL CARCINOMA
     Dosage: 50 mg, daily, 4 weeks on and 2 weeks off (duration of treatment: 2 Mo)
     Route: 048
     Dates: start: 20120518
  2. MS CONTIN [Concomitant]
  3. MORPHIN IR [Concomitant]

REACTIONS (2)
  - Sudden death [Fatal]
  - Abdominal pain [Unknown]
